FAERS Safety Report 4361871-0 (Version None)
Quarter: 2004Q2

REPORT INFORMATION
  Report Type: 
  Country: None (occurrence: None)
  Receive Date: 20040521
  Receipt Date: 20040326
  Transmission Date: 20050107
  Serious: No
  Sender: FDA-Public Use
  Company Number: US-GLAXOSMITHKLINE-A0504791A

PATIENT
  Age: 41 Year
  Sex: Female

DRUGS (4)
  1. WELLBUTRIN XL [Suspect]
     Dosage: 150MG PER DAY
     Route: 048
     Dates: start: 20040301, end: 20040325
  2. ORAL CONTRACEPTIVE [Concomitant]
  3. HYDROXYZINE [Concomitant]
  4. PREDNISONE [Concomitant]

REACTIONS (2)
  - SWELLING [None]
  - URTICARIA [None]
